FAERS Safety Report 8015527-3 (Version None)
Quarter: 2011Q4

REPORT INFORMATION
  Report Type: 
  Country: None (occurrence: None)
  Receive Date: 20111223
  Receipt Date: 20111213
  Transmission Date: 20120403
  Serious: Yes (Other)
  Sender: FDA-Public Use
  Company Number: IMP_05481_2011

PATIENT
  Age: 72 Year
  Sex: Female

DRUGS (5)
  1. ENALAPRIL MALEATE [Concomitant]
  2. OMEPRAZOLE [Concomitant]
  3. ACETYLSALICYLIC ACID SRT [Concomitant]
  4. METFORMIN HCL [Suspect]
     Indication: PRODUCT USED FOR UNKNOWN INDICATION
     Dosage: (850 MG 1X/12 HOURS)
  5. FUROSEMIDE [Concomitant]

REACTIONS (15)
  - BLOOD GLUCOSE INCREASED [None]
  - BLOOD CHLORIDE DECREASED [None]
  - PAIN IN EXTREMITY [None]
  - HYPERKALAEMIA [None]
  - OLIGURIA [None]
  - VOMITING [None]
  - BLOOD PRESSURE DECREASED [None]
  - RENAL IMPAIRMENT [None]
  - ACCIDENTAL OVERDOSE [None]
  - TACHYPNOEA [None]
  - HAEMODIALYSIS [None]
  - LACTIC ACIDOSIS [None]
  - ASTHENIA [None]
  - ABDOMINAL DISCOMFORT [None]
  - BLOOD SODIUM DECREASED [None]
